FAERS Safety Report 12336982 (Version 5)
Quarter: 2016Q2

REPORT INFORMATION
  Report Type: Spontaneous
  Country: TR (occurrence: TR)
  Receive Date: 20160505
  Receipt Date: 20160601
  Transmission Date: 20160815
  Serious: Yes (Other)
  Sender: FDA-Public Use
  Company Number: PHHY2016TR058974

PATIENT
  Age: 51 Year
  Sex: Male

DRUGS (5)
  1. SANDIMMUN NEORAL [Suspect]
     Active Substance: CYCLOSPORINE
     Indication: UVEITIS
     Dosage: 100 MG, BID
     Route: 048
     Dates: start: 200911, end: 201003
  2. INFLIXIMAB [Concomitant]
     Active Substance: INFLIXIMAB
     Indication: BEHCET^S SYNDROME
     Dosage: 5 MG/KG, UNK (AT WEEKS 0, 2 AND 6, AND CONTINUED EVERY 8 WEEKS AFTER WEEK 6)
     Route: 065
     Dates: start: 201202
  3. AZATHIOPRINE. [Suspect]
     Active Substance: AZATHIOPRINE
     Indication: BEHCET^S SYNDROME
     Dosage: 3 MG/KG, UNK
     Route: 065
  4. SANDIMMUN NEORAL [Suspect]
     Active Substance: CYCLOSPORINE
     Indication: BEHCET^S SYNDROME
     Dosage: 5 MG/KG, UNK
     Route: 065
  5. AZATHIOPRINE. [Suspect]
     Active Substance: AZATHIOPRINE
     Indication: UVEITIS
     Dosage: 50 MG, BID
     Route: 048
     Dates: start: 2000, end: 2010

REACTIONS (4)
  - Product use issue [Unknown]
  - Uveitis [Unknown]
  - Renal impairment [Recovered/Resolved]
  - Nausea [Recovered/Resolved]
